FAERS Safety Report 12982654 (Version 1)
Quarter: 2016Q4

REPORT INFORMATION
  Report Type: Spontaneous
  Country: US (occurrence: US)
  Receive Date: 20161129
  Receipt Date: 20161129
  Transmission Date: 20170207
  Serious: No
  Sender: FDA-Public Use
  Company Number: US-GLAXOSMITHKLINE-US2016173748

PATIENT
  Sex: Female

DRUGS (3)
  1. VENTOLIN HFA [Suspect]
     Active Substance: ALBUTEROL SULFATE
     Indication: EMPHYSEMA
     Dosage: 1 PUFF(S), PRN
     Route: 055
     Dates: start: 2016
  2. NEXIUM [Concomitant]
     Active Substance: ESOMEPRAZOLE MAGNESIUM
  3. LISINOPRIL. [Concomitant]
     Active Substance: LISINOPRIL

REACTIONS (5)
  - Device use error [Recovered/Resolved]
  - Product cleaning inadequate [Unknown]
  - Asthma [Recovered/Resolved]
  - Device issue [Unknown]
  - Drug dose omission [Unknown]

NARRATIVE: CASE EVENT DATE: 2016
